FAERS Safety Report 9184310 (Version 1)
Quarter: 2012Q4

REPORT INFORMATION
  Report Type: 
  Country: US (occurrence: US)
  Receive Date: 20121031
  Receipt Date: 20121031
  Transmission Date: 20130627
  Serious: Yes (Hospitalization)
  Sender: FDA-Public Use
  Company Number: US-BAYER-2012-113720

PATIENT
  Age: 38 Year
  Sex: Female
  Weight: 57.14 kg

DRUGS (8)
  1. YAZ [Suspect]
  2. ALLEGRA [Concomitant]
  3. PRO-AIR [Concomitant]
  4. ZOLOFT [Concomitant]
  5. FLONASE [Concomitant]
  6. PERCOCET [Concomitant]
  7. MAGNESIUM [Concomitant]
  8. VITAMIN D [Concomitant]

REACTIONS (1)
  - Pulmonary embolism [Recovering/Resolving]
